FAERS Safety Report 20501565 (Version 3)
Quarter: 2022Q1

REPORT INFORMATION
  Report Type: Spontaneous
  Country: JP (occurrence: JP)
  Receive Date: 20220222
  Receipt Date: 20220228
  Transmission Date: 20220423
  Serious: Yes (Hospitalization, Other)
  Sender: FDA-Public Use
  Company Number: JP-PFIZER INC-202200280349

PATIENT
  Age: 14 Year
  Sex: Female

DRUGS (3)
  1. SIROLIMUS [Suspect]
     Active Substance: SIROLIMUS
     Indication: Gorham^s disease
     Dosage: UNK
     Route: 065
  2. SIROLIMUS [Suspect]
     Active Substance: SIROLIMUS
     Indication: Osteolysis
  3. SIROLIMUS [Suspect]
     Active Substance: SIROLIMUS
     Indication: Cerebrospinal fluid leakage

REACTIONS (2)
  - Meningitis bacterial [Recovered/Resolved]
  - Alpha haemolytic streptococcal infection [Recovered/Resolved]
